FAERS Safety Report 6259379-0 (Version None)
Quarter: 2009Q3

REPORT INFORMATION
  Report Type: 
  Country: None (occurrence: None)
  Receive Date: 20090706
  Receipt Date: 20090625
  Transmission Date: 20100115
  Serious: Yes (Hospitalization)
  Sender: FDA-Public Use
  Company Number: 09US002077

PATIENT
  Age: 61 Year
  Sex: Female
  Weight: 95.2 kg

DRUGS (5)
  1. NICOTINE [Suspect]
     Indication: SMOKING CESSATION THERAPY
     Dosage: 6-9 LOZENGES PER DAY, ORAL
     Route: 048
     Dates: start: 20090406, end: 20090625
  2. TOPROL-XL [Concomitant]
  3. VYTORIN [Concomitant]
  4. ASPIRIN [Concomitant]
  5. NITROSTAT [Concomitant]

REACTIONS (3)
  - ANGINA PECTORIS [None]
  - EXPIRED DRUG ADMINISTERED [None]
  - SOMNOLENCE [None]
